FAERS Safety Report 9038350 (Version 1)
Quarter: 2013Q1

REPORT INFORMATION
  Report Type: Report from Study
  Country: US (occurrence: US)
  Receive Date: 20130130
  Receipt Date: 20130130
  Transmission Date: 20140127
  Serious: No
  Sender: FDA-Public Use
  Company Number: US-ABBOTT-12P-163-0947509-00

PATIENT
  Age: 20 Year
  Sex: Female
  Weight: 61.29 kg

DRUGS (3)
  1. HUMIRA 40 MG/0.8 ML PEN [Suspect]
     Indication: RHEUMATOID ARTHRITIS
     Route: 058
     Dates: start: 201205
  2. SULFASALAZINE [Concomitant]
     Indication: RHEUMATOID ARTHRITIS
  3. IRON [Concomitant]
     Indication: BLOOD IRON DECREASED
     Route: 048
     Dates: start: 201204

REACTIONS (2)
  - Abasia [Not Recovered/Not Resolved]
  - Pain [Not Recovered/Not Resolved]
